FAERS Safety Report 6037796-1 (Version None)
Quarter: 2009Q1

REPORT INFORMATION
  Report Type: 
  Country: None (occurrence: None)
  Receive Date: 20090113
  Receipt Date: 20081217
  Transmission Date: 20090719
  Serious: Yes (Other)
  Sender: FDA-Public Use
  Company Number: 134244

PATIENT
  Age: 70 Year
  Sex: Female

DRUGS (8)
  1. EPIRUBICIN [Suspect]
     Indication: BREAST CANCER METASTATIC
  2. FLUOROURACIL [Suspect]
     Indication: BREAST CANCER METASTATIC
     Dosage: INTRAVENOUS
     Route: 042
  3. GEMCITABINE [Suspect]
     Indication: BREAST CANCER METASTATIC
  4. METHOTREXATE [Suspect]
     Indication: BREAST CANCER METASTATIC
     Dosage: INTRAVENOUS
     Route: 042
  5. PAMIDRONATE DISODIUM [Suspect]
     Indication: BREAST CANCER METASTATIC
     Dosage: 90 MG, ONCE A MONTH, INTRAVENOUS
     Route: 042
  6. CAPECITABINE [Suspect]
     Indication: BREAST CANCER METASTATIC
     Dates: start: 20071001
  7. CYCLOPHOSPHAMIDE [Suspect]
     Indication: BREAST CANCER METASTATIC
  8. DOCETAXEL [Suspect]
     Indication: BREAST CANCER METASTATIC

REACTIONS (5)
  - MALIGNANT NEOPLASM PROGRESSION [None]
  - METASTASES TO BONE [None]
  - METASTASES TO LIVER [None]
  - MUCOSAL INFLAMMATION [None]
  - OSTEONECROSIS [None]
